FAERS Safety Report 22588009 (Version 1)
Quarter: 2023Q2

REPORT INFORMATION
  Report Type: Spontaneous
  Country: CN (occurrence: CN)
  Receive Date: 20230612
  Receipt Date: 20230612
  Transmission Date: 20230721
  Serious: Yes (Disabling, Other)
  Sender: FDA-Public Use
  Company Number: None

PATIENT
  Age: 33 Year
  Sex: Female
  Weight: 60 kg

DRUGS (3)
  1. CYCLOPHOSPHAMIDE [Suspect]
     Active Substance: CYCLOPHOSPHAMIDE
     Indication: Systemic lupus erythematosus
     Dosage: 0.4 G, QD, DILUTED WITH 0.9% SODIUM CHLORIDE 250 ML FOR HORMONE WITH IMMUNE PREPARATION
     Route: 041
     Dates: start: 20230318, end: 20230319
  2. CYCLOPHOSPHAMIDE [Suspect]
     Active Substance: CYCLOPHOSPHAMIDE
     Indication: Neoplasm
  3. SODIUM CHLORIDE [Suspect]
     Active Substance: SODIUM CHLORIDE
     Indication: Medication dilution
     Dosage: 0.9% 250 ML, QD, DOSAGE FORM: INJECTION, USED TO DILUTE CYCLOPHOSPHAMIDE 0.4 G, FOR HORMONE WITH IMM
     Route: 041
     Dates: start: 20230318, end: 20230319

REACTIONS (1)
  - Liver injury [Recovered/Resolved]

NARRATIVE: CASE EVENT DATE: 20230320
